FAERS Safety Report 18845712 (Version 1)
Quarter: 2021Q1

REPORT INFORMATION
  Report Type: Report from Study
  Country: US (occurrence: US)
  Receive Date: 20210203
  Receipt Date: 20210203
  Transmission Date: 20210419
  Serious: No
  Sender: FDA-Public Use
  Company Number: US-EXELIXIS-CABO-20030160

PATIENT
  Sex: Male

DRUGS (20)
  1. MORPHINE SULFATE. [Concomitant]
     Active Substance: MORPHINE SULFATE
  2. DOXYCYCLINE HYCLATE. [Concomitant]
     Active Substance: DOXYCYCLINE HYCLATE
  3. LEVETIRACETAM. [Concomitant]
     Active Substance: LEVETIRACETAM
  4. OXYCODONE [Concomitant]
     Active Substance: OXYCODONE
  5. HYDROMORPHONE [Concomitant]
     Active Substance: HYDROMORPHONE
  6. LORAZEPAM. [Concomitant]
     Active Substance: LORAZEPAM
  7. OSELTAMIVIR [Concomitant]
     Active Substance: OSELTAMIVIR
  8. CYCLOBENZAPRINE. [Concomitant]
     Active Substance: CYCLOBENZAPRINE
  9. MINOCYCLINE HCL [Concomitant]
     Active Substance: MINOCYCLINE HYDROCHLORIDE
  10. SUCRALFATE. [Concomitant]
     Active Substance: SUCRALFATE
  11. XARELTO [Concomitant]
     Active Substance: RIVAROXABAN
  12. CARAFATE [Concomitant]
     Active Substance: SUCRALFATE
  13. ENOXAPARIN SODIUM. [Concomitant]
     Active Substance: ENOXAPARIN SODIUM
  14. LIDOCAINE. [Concomitant]
     Active Substance: LIDOCAINE
  15. CABOMETYX [Suspect]
     Active Substance: CABOZANTINIB S-MALATE
     Indication: RENAL CANCER
     Dosage: 40 MG, QD
     Route: 048
     Dates: start: 20190514
  16. FRAGMIN [Concomitant]
     Active Substance: DALTEPARIN SODIUM
  17. BENZONATATE. [Concomitant]
     Active Substance: BENZONATATE
  18. METOCLOPRAMIDE. [Concomitant]
     Active Substance: METOCLOPRAMIDE
  19. PANTOPRAZOLE [Concomitant]
     Active Substance: PANTOPRAZOLE
  20. RISPERIDONE. [Concomitant]
     Active Substance: RISPERIDONE

REACTIONS (1)
  - Drug intolerance [Unknown]
